FAERS Safety Report 20491218 (Version 1)
Quarter: 2022Q1

REPORT INFORMATION
  Report Type: Report from Study
  Country: US (occurrence: US)
  Receive Date: 20220218
  Receipt Date: 20220218
  Transmission Date: 20220424
  Serious: No
  Sender: FDA-Public Use
  Company Number: US-MIRM-000208

PATIENT
  Age: 13 Year
  Sex: Male
  Weight: 57.153 kg

DRUGS (6)
  1. LIVMARLI [Suspect]
     Active Substance: MARALIXIBAT CHLORIDE
     Indication: Product used for unknown indication
     Route: 048
     Dates: start: 20211020
  2. 1328777 (GLOBALC3Sep19): Ursodiol [Concomitant]
     Indication: Product used for unknown indication
     Route: 048
  3. 1328139 (GLOBALC3Sep19): Rifampin [Concomitant]
     Indication: Product used for unknown indication
     Route: 048
  4. 3923670 (GLOBALC3Sep19): Children^s Multiple Vitamin [Concomitant]
     Indication: Product used for unknown indication
     Route: 048
  5. 1324906 (GLOBALC3Sep19): Vitamin C [Concomitant]
     Indication: Product used for unknown indication
     Route: 048
  6. 1328876 (GLOBALC3Sep19): Vitamin D3 [Concomitant]
     Indication: Product used for unknown indication
     Route: 048

REACTIONS (2)
  - Diarrhoea [Not Recovered/Not Resolved]
  - Muscular weakness [Recovered/Resolved]

NARRATIVE: CASE EVENT DATE: 20211020
